FAERS Safety Report 15066483 (Version 3)
Quarter: 2019Q2

REPORT INFORMATION
  Report Type: Spontaneous
  Country: DE (occurrence: DE)
  Receive Date: 20180626
  Receipt Date: 20190524
  Transmission Date: 20190711
  Serious: Yes (Other)
  Sender: FDA-Public Use
  Company Number: DE-BAUSCH-BL-2018-017447

PATIENT
  Age: 10 Year
  Sex: Male

DRUGS (1)
  1. CYCLOPENTOLATE HCL [Suspect]
     Active Substance: CYCLOPENTOLATE HYDROCHLORIDE
     Indication: OPHTHALMOLOGICAL EXAMINATION
     Route: 047
     Dates: start: 20180612, end: 20180612

REACTIONS (3)
  - Malaise [Recovering/Resolving]
  - Infection [Recovering/Resolving]
  - Bradycardia [Recovering/Resolving]

NARRATIVE: CASE EVENT DATE: 20180613
